FAERS Safety Report 21366307 (Version 1)
Quarter: 2022Q3

REPORT INFORMATION
  Report Type: Spontaneous
  Country: US (occurrence: US)
  Receive Date: 20220922
  Receipt Date: 20220922
  Transmission Date: 20221027
  Serious: No
  Sender: FDA-Public Use
  Company Number: US-PURDUE PHARMA-USA-2022-0293336

PATIENT
  Sex: Female

DRUGS (5)
  1. BUPRENORPHINE [Suspect]
     Active Substance: BUPRENORPHINE
     Indication: Pain
     Dosage: 20 MCG/HR, UNK
     Route: 062
  2. ADVIL                              /00109201/ [Concomitant]
     Indication: Back pain
     Dosage: UNK, PRN
     Route: 065
  3. TRAMADOL [Concomitant]
     Active Substance: TRAMADOL
     Indication: Back pain
     Dosage: 50 MG, Q8H PRN
     Route: 048
     Dates: start: 201607
  4. TRAMADOL [Concomitant]
     Active Substance: TRAMADOL
     Indication: Breakthrough pain
  5. TYLENOL                            /00020001/ [Concomitant]
     Indication: Breakthrough pain
     Dosage: UNK, PRN
     Route: 065

REACTIONS (2)
  - Drug ineffective [Recovered/Resolved]
  - Product expiration date issue [Unknown]

NARRATIVE: CASE EVENT DATE: 20220325
